FAERS Safety Report 19968220 (Version 1)
Quarter: 2021Q4

REPORT INFORMATION
  Report Type: Spontaneous
  Country: US (occurrence: US)
  Receive Date: 20211019
  Receipt Date: 20211019
  Transmission Date: 20220303
  Serious: Yes (Death, Other)
  Sender: FDA-Public Use
  Company Number: 2018SF65498

PATIENT
  Age: 24857 Day
  Sex: Female
  Weight: 73.9 kg

DRUGS (49)
  1. NEXIUM [Suspect]
     Active Substance: ESOMEPRAZOLE MAGNESIUM
     Indication: Gastrooesophageal reflux disease
     Route: 048
     Dates: start: 1997
  2. PREVACID [Suspect]
     Active Substance: LANSOPRAZOLE
     Indication: Gastrooesophageal reflux disease
     Route: 065
     Dates: start: 1996
  3. PREVACID 24 HR [Suspect]
     Active Substance: LANSOPRAZOLE
     Indication: Gastrooesophageal reflux disease
     Route: 065
     Dates: start: 1997
  4. PROTONIX [Suspect]
     Active Substance: PANTOPRAZOLE SODIUM
     Indication: Gastrooesophageal reflux disease
     Dosage: DAILY
     Route: 065
     Dates: start: 20170311
  5. LOSARTAN [Concomitant]
     Active Substance: LOSARTAN
  6. METOPROLOL [Concomitant]
     Active Substance: METOPROLOL
  7. CLONAZEPAM [Concomitant]
     Active Substance: CLONAZEPAM
  8. ATIVAN [Concomitant]
     Active Substance: LORAZEPAM
  9. OXYCODONE [Concomitant]
     Active Substance: OXYCODONE
  10. UNSPECIFIED INGREDIENT [Concomitant]
     Active Substance: UNSPECIFIED INGREDIENT
  11. ALBUTEROL [Concomitant]
     Active Substance: ALBUTEROL
  12. ADVAIR DISKUS [Concomitant]
     Active Substance: FLUTICASONE PROPIONATE\SALMETEROL XINAFOATE
  13. SEROQUEL [Concomitant]
     Active Substance: QUETIAPINE FUMARATE
  14. AMBIEN [Concomitant]
     Active Substance: ZOLPIDEM TARTRATE
  15. TRAZODONE [Concomitant]
     Active Substance: TRAZODONE HYDROCHLORIDE
  16. AMLODIPINE BESYLATE [Concomitant]
     Active Substance: AMLODIPINE BESYLATE
  17. RISPERDAL [Concomitant]
     Active Substance: RISPERIDONE
  18. ZOLOFT [Concomitant]
     Active Substance: SERTRALINE HYDROCHLORIDE
  19. NICOTINE [Concomitant]
     Active Substance: NICOTINE
  20. BACLOFEN [Concomitant]
     Active Substance: BACLOFEN
  21. MAXZIDE [Concomitant]
     Active Substance: HYDROCHLOROTHIAZIDE\TRIAMTERENE
  22. POTASSIUM CHLORIDE [Concomitant]
     Active Substance: POTASSIUM CHLORIDE
  23. MACROBID [Concomitant]
     Active Substance: NITROFURANTOIN\NITROFURANTOIN MONOHYDRATE
  24. PERCOCET [Concomitant]
     Active Substance: ACETAMINOPHEN\OXYCODONE HYDROCHLORIDE
  25. METOPROLOL SUCCINATE [Concomitant]
     Active Substance: METOPROLOL SUCCINATE
  26. CORTISPORIN [Concomitant]
     Active Substance: BACITRACIN ZINC\HYDROCORTISONE\NEOMYCIN SULFATE\POLYMYXIN B SULFATE
  27. LASIX [Concomitant]
     Active Substance: FUROSEMIDE
  28. NORCO [Concomitant]
     Active Substance: ACETAMINOPHEN\HYDROCODONE BITARTRATE
  29. CYCLOBENZAPRINE [Concomitant]
     Active Substance: CYCLOBENZAPRINE
  30. ZINC [Concomitant]
     Active Substance: ZINC
  31. IRON [Concomitant]
     Active Substance: IRON
  32. ASPIRIN [Concomitant]
     Active Substance: ASPIRIN
  33. NAPROXEN [Concomitant]
     Active Substance: NAPROXEN
  34. MORPHINE [Concomitant]
     Active Substance: MORPHINE
  35. FENTANYL [Concomitant]
     Active Substance: FENTANYL
  36. METHOCARBAMOL [Concomitant]
     Active Substance: METHOCARBAMOL
  37. CIPROFLOXACIN [Concomitant]
     Active Substance: CIPROFLOXACIN
  38. DUONEB [Concomitant]
     Active Substance: ALBUTEROL SULFATE\IPRATROPIUM BROMIDE
  39. HUMULIN NOS [Concomitant]
     Active Substance: INSULIN HUMAN
  40. METHYLPREDNISOLONE [Concomitant]
     Active Substance: METHYLPREDNISOLONE
  41. SODIUM CHLORIDE [Concomitant]
     Active Substance: SODIUM CHLORIDE
  42. FOLIC ACID [Concomitant]
     Active Substance: FOLIC ACID
  43. NUCLEOTIDES NOS/NICOTINAMIDE/CYANOCOBALAMIN/(6S)-5-METHYLTETRAHYDROFOL [Concomitant]
  44. VITAMINS [Concomitant]
     Active Substance: VITAMINS
  45. MOMETTASONE-FORMOTEROL [Concomitant]
  46. ZOFRAN [Concomitant]
     Active Substance: ONDANSETRON HYDROCHLORIDE
  47. COLACE [Concomitant]
     Active Substance: DOCUSATE SODIUM
  48. DEXTROSE [Concomitant]
     Active Substance: DEXTROSE
  49. GLUCAGON [Concomitant]
     Active Substance: GLUCAGON

REACTIONS (3)
  - Chronic kidney disease [Unknown]
  - Acute kidney injury [Unknown]
  - Renal failure [Unknown]

NARRATIVE: CASE EVENT DATE: 20161207
